FAERS Safety Report 10387758 (Version 1)
Quarter: 2014Q3

REPORT INFORMATION
  Report Type: Report from Study
  Country: GR (occurrence: GR)
  Receive Date: 20140815
  Receipt Date: 20140815
  Transmission Date: 20150326
  Serious: Yes (Other)
  Sender: FDA-Public Use
  Company Number: GR-ROCHE-1444947

PATIENT

DRUGS (2)
  1. CEFTRIAXONE. [Suspect]
     Active Substance: CEFTRIAXONE
     Indication: INFECTION
     Route: 042
  2. CEFTRIAXONE. [Suspect]
     Active Substance: CEFTRIAXONE
     Route: 030

REACTIONS (4)
  - Blood triglycerides increased [Recovered/Resolved]
  - Low density lipoprotein increased [Recovered/Resolved]
  - High density lipoprotein decreased [Recovered/Resolved]
  - Blood cholesterol increased [Recovered/Resolved]
